FAERS Safety Report 15544233 (Version 1)
Quarter: 2018Q4

REPORT INFORMATION
  Report Type: Spontaneous
  Country: GB (occurrence: GB)
  Receive Date: 20181024
  Receipt Date: 20181024
  Transmission Date: 20190205
  Serious: Yes (Life-Threatening, Other)
  Sender: FDA-Public Use
  Company Number: GB-TEVA-2018-GB-967685

PATIENT
  Age: 45 Year
  Sex: Male
  Weight: 63.5 kg

DRUGS (1)
  1. METOCLOPRAMIDE. [Suspect]
     Active Substance: METOCLOPRAMIDE
     Indication: OESOPHAGITIS
     Dosage: 20 MILLIGRAM DAILY;
     Route: 048
     Dates: start: 20140905, end: 20140907

REACTIONS (3)
  - Depression [Recovered/Resolved]
  - Tearfulness [Recovered/Resolved]
  - Suicidal ideation [Recovered/Resolved]

NARRATIVE: CASE EVENT DATE: 20140907
